FAERS Safety Report 12406966 (Version 2)
Quarter: 2016Q3

REPORT INFORMATION
  Report Type: Spontaneous
  Country: FR (occurrence: FR)
  Receive Date: 20160526
  Receipt Date: 20160727
  Transmission Date: 20161109
  Serious: Yes (Other)
  Sender: FDA-Public Use
  Company Number: FR-ROCHE-1764165

PATIENT
  Age: 69 Year
  Sex: Female

DRUGS (5)
  1. MABTHERA [Suspect]
     Active Substance: RITUXIMAB
     Indication: LYMPHOCYTIC LYMPHOMA
     Route: 042
     Dates: start: 20160422, end: 20160423
  2. ETOPOSIDE. [Suspect]
     Active Substance: ETOPOSIDE
     Indication: LYMPHOCYTIC LYMPHOMA
     Route: 042
     Dates: start: 20160422, end: 20160423
  3. IFOSFAMIDE EG [Suspect]
     Active Substance: IFOSFAMIDE
     Indication: LYMPHOCYTIC LYMPHOMA
     Route: 042
     Dates: start: 20160422, end: 20160423
  4. UROMITEXAN [Suspect]
     Active Substance: MESNA
     Indication: LYMPHOCYTIC LYMPHOMA
     Route: 042
     Dates: start: 20160422, end: 20160423
  5. HELIXATE [Concomitant]
     Active Substance: ANTIHEMOPHILIC FACTOR, HUMAN RECOMBINANT

REACTIONS (2)
  - Status epilepticus [Recovered/Resolved]
  - Confusional state [Recovered/Resolved]

NARRATIVE: CASE EVENT DATE: 20160423
